FAERS Safety Report 11506137 (Version 1)
Quarter: 2015Q3

REPORT INFORMATION
  Report Type: Spontaneous
  Country: US (occurrence: US)
  Receive Date: 20150915
  Receipt Date: 20150915
  Transmission Date: 20151125
  Serious: No
  Sender: FDA-Public Use
  Company Number: US-ROCHE-766908

PATIENT
  Age: 58 Year
  Sex: Male

DRUGS (2)
  1. COPEGUS [Suspect]
     Active Substance: RIBAVIRIN
     Indication: HEPATITIS C
     Dosage: DIVIDED DOSES.
     Route: 065
  2. PEGASYS [Suspect]
     Active Substance: PEGINTERFERON ALFA-2A
     Indication: HEPATITIS C
     Route: 065

REACTIONS (7)
  - Pain [Recovered/Resolved]
  - Hyperaesthesia [Unknown]
  - Chills [Recovered/Resolved]
  - Pain in extremity [Unknown]
  - Chest pain [Unknown]
  - Constipation [Unknown]
  - Eye pain [Unknown]

NARRATIVE: CASE EVENT DATE: 20110311
